FAERS Safety Report 17698735 (Version 1)
Quarter: 2020Q2

REPORT INFORMATION
  Report Type: Spontaneous
  Country: US (occurrence: US)
  Receive Date: 20200422
  Receipt Date: 20200422
  Transmission Date: 20200714
  Serious: No
  Sender: FDA-Public Use
  Company Number: None

PATIENT
  Age: 52 Year
  Sex: Male

DRUGS (1)
  1. ENBREL [Suspect]
     Active Substance: ETANERCEPT
     Indication: ANKYLOSING SPONDYLITIS
     Route: 058
     Dates: start: 201605

REACTIONS (4)
  - Therapy interrupted [None]
  - Musculoskeletal stiffness [None]
  - Coronavirus infection [None]
  - Headache [None]

NARRATIVE: CASE EVENT DATE: 20200406
